FAERS Safety Report 12818271 (Version 1)
Quarter: 2016Q4

REPORT INFORMATION
  Report Type: Spontaneous
  Country: US (occurrence: US)
  Receive Date: 20161006
  Receipt Date: 20161006
  Transmission Date: 20170207
  Serious: No
  Sender: FDA-Public Use
  Company Number: None

PATIENT
  Age: 84 Year
  Sex: Male
  Weight: 61.69 kg

DRUGS (10)
  1. ATORVASTATIN [Concomitant]
     Active Substance: ATORVASTATIN
  2. GLUCOSAMINE/CHONDOROITIZ [Concomitant]
  3. ASPIRIN. [Concomitant]
     Active Substance: ASPIRIN
  4. LOSARTAN. [Concomitant]
     Active Substance: LOSARTAN
  5. GLIMIPIRIDE [Concomitant]
     Active Substance: GLIMEPIRIDE
  6. METOPROLOL. [Concomitant]
     Active Substance: METOPROLOL
  7. OXYCODONE / ACETAMINOPHEN 7.5MG/32.5MG [Suspect]
     Active Substance: ACETAMINOPHEN\OXYCODONE HYDROCHLORIDE
     Indication: MENISCUS INJURY
     Dosage: ?          QUANTITY:: Q/TW [KIM?L //4;?
     Route: 048
     Dates: start: 20160819, end: 20160915
  8. PANTOPRAZOLE [Concomitant]
     Active Substance: PANTOPRAZOLE SODIUM
  9. OXYCODONE / ACETAMINOPHEN 7.5MG/32.5MG [Suspect]
     Active Substance: ACETAMINOPHEN\OXYCODONE HYDROCHLORIDE
     Indication: LIGAMENT SPRAIN
     Dosage: ?          QUANTITY:: Q/TW [KIM?L //4;?
     Route: 048
     Dates: start: 20160819, end: 20160915
  10. CLOPIDOGREL [Concomitant]
     Active Substance: CLOPIDOGREL BISULFATE

REACTIONS (2)
  - Drug ineffective [None]
  - Product substitution issue [None]

NARRATIVE: CASE EVENT DATE: 20160819
